FAERS Safety Report 19036646 (Version 1)
Quarter: 2021Q1

REPORT INFORMATION
  Report Type: Spontaneous
  Country: US (occurrence: US)
  Receive Date: 20210322
  Receipt Date: 20210322
  Transmission Date: 20210420
  Serious: No
  Sender: FDA-Public Use
  Company Number: US-ORGANON-O2103USA001160

PATIENT
  Age: 23 Year
  Sex: Female
  Weight: 117.93 kg

DRUGS (1)
  1. NEXPLANON [Suspect]
     Active Substance: ETONOGESTREL
     Indication: CONTRACEPTION
     Dosage: 1 IN UPPER LEFT ARM
     Route: 059
     Dates: start: 20190522

REACTIONS (3)
  - Menstruation irregular [Not Recovered/Not Resolved]
  - Implant site pain [Not Recovered/Not Resolved]
  - Skin tightness [Not Recovered/Not Resolved]

NARRATIVE: CASE EVENT DATE: 20201210
